FAERS Safety Report 5122678-X (Version None)
Quarter: 2006Q4

REPORT INFORMATION
  Report Type: 
  Country: None (occurrence: None)
  Receive Date: 20061005
  Receipt Date: 20061005
  Transmission Date: 20070319
  Serious: Yes (Hospitalization)
  Sender: FDA-Public Use
  Company Number: None

PATIENT
  Age: 51 Year
  Sex: Male
  Weight: 123.6 kg

DRUGS (4)
  1. OXALIPLATIN [Suspect]
     Indication: COLON CANCER
     Dosage: 299 MG Q21 D IV
     Route: 042
     Dates: start: 20060918
  2. CAPECITABINE [Suspect]
     Indication: COLON CANCER
     Dosage: 1950 MG BID X 14 D PO
     Route: 048
     Dates: start: 20060918, end: 20060923
  3. NAPROSYN [Concomitant]
  4. HYDROCODONE [Concomitant]

REACTIONS (1)
  - PYREXIA [None]
